FAERS Safety Report 18718262 (Version 3)
Quarter: 2021Q1

REPORT INFORMATION
  Report Type: Spontaneous
  Country: US (occurrence: US)
  Receive Date: 20210108
  Receipt Date: 20210219
  Transmission Date: 20210419
  Serious: No
  Sender: FDA-Public Use
  Company Number: US-UNITED THERAPEUTICS-UNT-2020-017316

PATIENT
  Age: 44 Year
  Sex: Female

DRUGS (3)
  1. MACITENTAN [Concomitant]
     Active Substance: MACITENTAN
     Indication: PULMONARY ARTERIAL HYPERTENSION
     Dosage: 10 MG, QD
     Route: 048
     Dates: start: 20171011
  2. REMODULIN [Suspect]
     Active Substance: TREPROSTINIL
     Dosage: 0.0463 ?G/KG, CONTINUING
     Route: 041
     Dates: end: 20210104
  3. REMODULIN [Suspect]
     Active Substance: TREPROSTINIL
     Indication: PULMONARY ARTERIAL HYPERTENSION
     Dosage: UNK, CONTINUING
     Route: 041
     Dates: start: 20170405

REACTIONS (2)
  - Dyspnoea exertional [Unknown]
  - Patient-device incompatibility [Recovered/Resolved]

NARRATIVE: CASE EVENT DATE: 20201020
